FAERS Safety Report 20531391 (Version 2)
Quarter: 2022Q1

REPORT INFORMATION
  Report Type: Spontaneous
  Country: US (occurrence: US)
  Receive Date: 20220301
  Receipt Date: 20220321
  Transmission Date: 20220424
  Serious: No
  Sender: FDA-Public Use
  Company Number: US-SA-SAC20220221001143

PATIENT
  Age: 46 Year
  Sex: Female

DRUGS (1)
  1. KEVZARA [Suspect]
     Active Substance: SARILUMAB
     Indication: Rheumatoid arthritis
     Dosage: 200 MG/1.14ML QOW
     Route: 058
     Dates: start: 201902

REACTIONS (3)
  - Herpes zoster [Unknown]
  - Cardiac disorder [Unknown]
  - Unevaluable event [Not Recovered/Not Resolved]
